FAERS Safety Report 14962246 (Version 1)
Quarter: 2018Q2

REPORT INFORMATION
  Report Type: Spontaneous
  Country: US (occurrence: US)
  Receive Date: 20180510
  Receipt Date: 20180510
  Transmission Date: 20180711
  Serious: Yes (Life-Threatening, Hospitalization, Disabling, Other)
  Sender: FDA-Public Use
  Company Number: None

PATIENT
  Age: 68 Year
  Sex: Female
  Weight: 55.7 kg

DRUGS (1)
  1. OFEV [Suspect]
     Active Substance: NINTEDANIB

REACTIONS (10)
  - Colectomy [None]
  - Nausea [None]
  - Vomiting [None]
  - Gastrointestinal perforation [None]
  - Pancreatic pseudocyst [None]
  - Splenectomy [None]
  - Tumour compression [None]
  - Abdominal mass [None]
  - Fat necrosis [None]
  - Weight decreased [None]

NARRATIVE: CASE EVENT DATE: 20180509
